FAERS Safety Report 11653488 (Version 3)
Quarter: 2017Q1

REPORT INFORMATION
  Report Type: Spontaneous
  Country: BR (occurrence: BR)
  Receive Date: 20151022
  Receipt Date: 20170120
  Transmission Date: 20170428
  Serious: Yes (Other)
  Sender: FDA-Public Use
  Company Number: BR-ABBVIE-14P-020-1290440-00

PATIENT
  Age: 57 Year
  Sex: Male
  Weight: 83 kg

DRUGS (8)
  1. DEPAKOTE ER [Suspect]
     Active Substance: DIVALPROEX SODIUM
     Indication: SEIZURE
     Route: 048
     Dates: start: 2013, end: 2015
  2. DEPAKOTE ER [Suspect]
     Active Substance: DIVALPROEX SODIUM
     Route: 048
     Dates: start: 2015
  3. LAMITOR [Suspect]
     Active Substance: LAMOTRIGINE
     Indication: SEIZURE
     Route: 048
     Dates: end: 2015
  4. LAMITOR [Suspect]
     Active Substance: LAMOTRIGINE
     Indication: NEUROCYSTICERCOSIS
     Route: 048
  5. DEPAKOTE ER [Suspect]
     Active Substance: DIVALPROEX SODIUM
     Indication: EPILEPSY
     Dosage: DAILY DOSE:1000MG;IN THE MORNING/ AT NIGHT
     Route: 048
     Dates: end: 2013
  6. LAMITOR [Suspect]
     Active Substance: LAMOTRIGINE
     Indication: EPILEPSY
     Route: 048
     Dates: end: 2015
  7. DEPAKOTE ER [Suspect]
     Active Substance: DIVALPROEX SODIUM
     Indication: NEUROCYSTICERCOSIS
     Route: 048
     Dates: start: 1994, end: 2015
  8. RIVOTRIL [Concomitant]
     Active Substance: CLONAZEPAM
     Indication: SLEEP DISORDER
     Dosage: DAILY DOSE: 1 TABLET; MORNING/NIGHT; WHEN PRESENTS SLEEPING PROBLEMS
     Route: 048
     Dates: start: 2012

REACTIONS (8)
  - Bone disorder [Not Recovered/Not Resolved]
  - Dental implantation [Recovered/Resolved]
  - Drug dispensing error [Unknown]
  - Bone loss [Unknown]
  - Device failure [Recovering/Resolving]
  - Dental implantation [Recovered/Resolved]
  - Device failure [Unknown]
  - Bone graft [Recovered/Resolved]

NARRATIVE: CASE EVENT DATE: 2011
